FAERS Safety Report 24087549 (Version 2)
Quarter: 2024Q3

REPORT INFORMATION
  Report Type: Spontaneous
  Country: GB (occurrence: GB)
  Receive Date: 20240714
  Receipt Date: 20240715
  Transmission Date: 20241016
  Serious: Yes (Other)
  Sender: JOHNSON AND JOHNSON
  Company Number: None

PATIENT
  Age: 45 Year
  Sex: Female
  Weight: 59 kg

DRUGS (9)
  1. XARELTO [Suspect]
     Active Substance: RIVAROXABAN
     Indication: Deep vein thrombosis
     Dosage: 15 MG, BID
     Route: 048
     Dates: start: 20240608, end: 20240609
  2. LEVOTHYROXINE [Concomitant]
     Active Substance: LEVOTHYROXINE\LEVOTHYROXINE SODIUM
     Dates: start: 20230228
  3. CARBOPLATIN [Concomitant]
     Active Substance: CARBOPLATIN
     Dates: start: 20240531
  4. PACLITAXEL [Concomitant]
     Active Substance: PACLITAXEL
     Dates: start: 20240531, end: 20240531
  5. PEMBROLIZUMAB [Concomitant]
     Active Substance: PEMBROLIZUMAB
     Dates: start: 20240531
  6. MEFENAMIC ACID [Concomitant]
     Active Substance: MEFENAMIC ACID
     Dates: start: 20240425
  7. TRANEXAMIC ACID [Concomitant]
     Active Substance: TRANEXAMIC ACID
     Dates: start: 20240408
  8. ZOPICLONE [Concomitant]
     Active Substance: ZOPICLONE
     Dates: start: 20240425
  9. DIAZEPAM [Concomitant]
     Active Substance: DIAZEPAM
     Dates: start: 20240426

REACTIONS (1)
  - Urticaria [Recovering/Resolving]

NARRATIVE: CASE EVENT DATE: 20240609
